FAERS Safety Report 9793038 (Version 1)
Quarter: 2014Q1

REPORT INFORMATION
  Report Type: Spontaneous
  Country: GB (occurrence: GB)
  Receive Date: 20140102
  Receipt Date: 20140102
  Transmission Date: 20141002
  Serious: Yes (Other)
  Sender: FDA-Public Use
  Company Number: GB-TEVA-453779ISR

PATIENT
  Sex: Female

DRUGS (1)
  1. CITALOPRAM [Suspect]
     Dates: start: 201306, end: 2013

REACTIONS (4)
  - Prescribed overdose [Unknown]
  - Lethargy [Unknown]
  - Fatigue [Unknown]
  - Flashback [Unknown]
